FAERS Safety Report 17710656 (Version 1)
Quarter: 2020Q2

REPORT INFORMATION
  Report Type: Spontaneous
  Country: FR (occurrence: FR)
  Receive Date: 20200427
  Receipt Date: 20200427
  Transmission Date: 20200714
  Serious: Yes (Life-Threatening)
  Sender: FDA-Public Use
  Company Number: NVSC2020FR110608

PATIENT
  Age: 49 Year
  Sex: Male
  Weight: 81 kg

DRUGS (13)
  1. ZOPHREN [Suspect]
     Active Substance: ONDANSETRON
     Indication: NAUSEA
     Dosage: UNK
     Route: 048
     Dates: start: 201902, end: 201904
  2. PARACETAMOL [Suspect]
     Active Substance: ACETAMINOPHEN
     Indication: PAIN
     Dosage: 1 G, Q6H
     Route: 048
     Dates: start: 20190415, end: 20190418
  3. FLUOROURACILE ACCORD [Suspect]
     Active Substance: FLUOROURACIL
     Indication: COLON CANCER
     Dosage: 1 DF, BIW
     Route: 042
     Dates: start: 20190107, end: 20190415
  4. SPASFON (PHLOROGLUCINOL/TRIMETHYLPHLOROGLUCINOL) [Suspect]
     Active Substance: PHLOROGLUCINOL\1,3,5-TRIMETHOXYBENZENE
     Indication: ABDOMINAL PAIN
     Dosage: UNK
     Route: 048
     Dates: start: 201903, end: 201904
  5. EMEND [Suspect]
     Active Substance: APREPITANT
     Indication: NAUSEA
     Dosage: UNK
     Route: 048
     Dates: start: 201904, end: 201904
  6. FOLINATE DE CALCIUM SANDOZ 10 MG/ML, SOLUTION INJECTABLE [Suspect]
     Active Substance: LEUCOVORIN CALCIUM
     Indication: COLON CANCER
     Dosage: 2 DF, QW
     Route: 042
     Dates: start: 20190107, end: 20190415
  7. OXALIPLATINE [Suspect]
     Active Substance: OXALIPLATIN
     Indication: COLON CANCER
     Dosage: 1 DF, BIW
     Route: 042
     Dates: start: 20190107, end: 20190415
  8. PALONOSETRON ACCORD [Suspect]
     Active Substance: PALONOSETRON HYDROCHLORIDE
     Indication: NAUSEA
     Dosage: 1 DF, BIW
     Route: 042
     Dates: start: 20190401, end: 20190415
  9. SMECTA [Suspect]
     Active Substance: MONTMORILLONITE
     Indication: DIARRHOEA
     Dosage: UNK
     Route: 048
     Dates: start: 201901, end: 201904
  10. PRIMPERAN [Suspect]
     Active Substance: METOCLOPRAMIDE HYDROCHLORIDE
     Indication: PAIN
     Dosage: 10 MG, Q8H
     Route: 048
     Dates: start: 20190415
  11. TRAMADOL. [Suspect]
     Active Substance: TRAMADOL
     Indication: PAIN
     Dosage: 50 MG, Q8H
     Route: 048
     Dates: start: 20190415, end: 20190418
  12. INEXIUM [Suspect]
     Active Substance: ESOMEPRAZOLE
     Indication: BURN OESOPHAGEAL
     Dosage: 2 DF, QD
     Route: 048
     Dates: start: 20190401, end: 20190418
  13. IMODIUM [Suspect]
     Active Substance: LOPERAMIDE HYDROCHLORIDE
     Indication: DIARRHOEA
     Dosage: UNK
     Route: 048
     Dates: start: 201901, end: 201904

REACTIONS (1)
  - Acute kidney injury [Recovered/Resolved]

NARRATIVE: CASE EVENT DATE: 20190417
